FAERS Safety Report 16785960 (Version 1)
Quarter: 2019Q4

REPORT INFORMATION
  Report Type: Spontaneous
  Country: US (occurrence: US)
  Receive Date: 20190908
  Receipt Date: 20190908
  Transmission Date: 20200122
  Serious: No
  Sender: FDA-Public Use
  Company Number: None

PATIENT
  Age: 44 Year
  Sex: Female

DRUGS (6)
  1. GARDEB OF LIFE VITAMIN CODE WOMEN [Concomitant]
  2. POLYMYXIN-B SULFATE AND TRIMETHOPRIM OPHTHALMIC SOLUTION [Suspect]
     Active Substance: POLYMYXIN B SULFATE\TRIMETHOPRIM
     Indication: CORNEAL ABRASION
     Dosage: ?          QUANTITY:1 DROP(S);?
     Route: 047
     Dates: start: 20190904, end: 20190908
  3. EQUATE CALCIUM CITRATE + D3 PETITES [Concomitant]
  4. POLYMYXIN-B SULFATE AND TRIMETHOPRIM OPHTHALMIC SOLUTION [Suspect]
     Active Substance: POLYMYXIN B SULFATE\TRIMETHOPRIM
     Indication: INFECTION PROPHYLAXIS
     Dosage: ?          QUANTITY:1 DROP(S);?
     Route: 047
     Dates: start: 20190904, end: 20190908
  5. EMERGEN-C 1000 MG [Concomitant]
  6. VITAMIN C DAILY IMMUNE SUPPORT [Concomitant]

REACTIONS (6)
  - Instillation site pain [None]
  - Instillation site swelling [None]
  - Photophobia [None]
  - Lacrimation increased [None]
  - Instillation site pruritus [None]
  - Instillation site erythema [None]

NARRATIVE: CASE EVENT DATE: 20190907
